FAERS Safety Report 9318991 (Version 1)
Quarter: 2013Q2

REPORT INFORMATION
  Report Type: Spontaneous
  Country: US (occurrence: US)
  Receive Date: 20130530
  Receipt Date: 20130530
  Transmission Date: 20140414
  Serious: Yes (Other)
  Sender: FDA-Public Use
  Company Number: US-PFIZER INC-2013161018

PATIENT
  Age: 44 Year
  Sex: Female
  Weight: 72.56 kg

DRUGS (2)
  1. XALATAN [Suspect]
     Indication: GLAUCOMA
     Dosage: UNK
     Route: 047
  2. XALATAN [Suspect]
     Dosage: UNK
     Route: 047

REACTIONS (3)
  - Uterine disorder [Unknown]
  - Hypertension [Unknown]
  - Intraocular pressure increased [Recovered/Resolved]
